FAERS Safety Report 12378604 (Version 1)
Quarter: 2016Q2

REPORT INFORMATION
  Report Type: Spontaneous
  Country: AU (occurrence: AU)
  Receive Date: 20160517
  Receipt Date: 20160517
  Transmission Date: 20160815
  Serious: Yes (Other)
  Sender: FDA-Public Use
  Company Number: AU-B.I. PHARMACEUTICALS,INC./RIDGEFIELD-2016-BI-31142BI

PATIENT
  Age: 23 Year
  Sex: Female

DRUGS (4)
  1. BUPIVACAINE - FENTANYL [Concomitant]
     Dosage: FORMULATION: INFUSION; DOSAGE: 0.0625% BUPIVACAINE AND 2.5 MICROGRAM/ML OF FENTANYL
     Route: 065
  2. LIGNOCAINE [Concomitant]
     Active Substance: LIDOCAINE HYDROCHLORIDE
     Indication: PRODUCT USED FOR UNKNOWN INDICATION
     Route: 065
  3. CATAPRES [Suspect]
     Active Substance: CLONIDINE HYDROCHLORIDE
     Indication: PRODUCT USED FOR UNKNOWN INDICATION
     Route: 065
  4. BUPIVACAINE - FENTANYL [Concomitant]
     Indication: PRODUCT USED FOR UNKNOWN INDICATION
     Dosage: FORMULATION: INFUSION; DOSAGE: PREMIX 0.125% BUPIVACAINE AND 5MCG FENTANYL
     Route: 065

REACTIONS (2)
  - Nerve injury [Not Recovered/Not Resolved]
  - Paralysis [Not Recovered/Not Resolved]
